FAERS Safety Report 20547281 (Version 2)
Quarter: 2022Q4

REPORT INFORMATION
  Report Type: Spontaneous
  Country: US (occurrence: US)
  Receive Date: 20220303
  Receipt Date: 20221228
  Transmission Date: 20230112
  Serious: Yes (Other)
  Sender: FDA-Public Use
  Company Number: US-PFIZER INC-202200308347

PATIENT
  Age: 67 Year
  Sex: Female

DRUGS (1)
  1. XELJANZ XR [Suspect]
     Active Substance: TOFACITINIB CITRATE
     Indication: Rheumatoid arthritis
     Dosage: 11 MG

REACTIONS (28)
  - Haematochezia [Unknown]
  - Melaena [Unknown]
  - Sjogren^s syndrome [Unknown]
  - Stress [Unknown]
  - Therapeutic product effect incomplete [Unknown]
  - Pain [Unknown]
  - Musculoskeletal stiffness [Unknown]
  - Swelling [Unknown]
  - Fatigue [Unknown]
  - Joint swelling [Unknown]
  - Pyrexia [Unknown]
  - Infection [Unknown]
  - Eye disorder [Unknown]
  - Visual impairment [Unknown]
  - Stomatitis [Unknown]
  - Skin lesion [Unknown]
  - Chest pain [Unknown]
  - Cough [Unknown]
  - Exercise tolerance decreased [Unknown]
  - Blood pressure abnormal [Unknown]
  - Oedema [Unknown]
  - Abdominal pain [Unknown]
  - Bowel movement irregularity [Unknown]
  - Jaundice [Unknown]
  - Urinary tract disorder [Unknown]
  - Blood glucose abnormal [Unknown]
  - Functional gastrointestinal disorder [Unknown]
  - Arthritis [Unknown]
